FAERS Safety Report 20835266 (Version 1)
Quarter: 2022Q2

REPORT INFORMATION
  Report Type: Spontaneous
  Country: CO (occurrence: CO)
  Receive Date: 20220516
  Receipt Date: 20220516
  Transmission Date: 20220721
  Serious: Yes (Other)
  Sender: FDA-Public Use
  Company Number: CO-BAYER-2020-061702

PATIENT
  Age: 20 Year
  Sex: Female
  Weight: 57 kg

DRUGS (1)
  1. LEVONORGESTREL [Suspect]
     Active Substance: LEVONORGESTREL
     Indication: Contraception
     Route: 059
     Dates: start: 20170622, end: 20190926

REACTIONS (4)
  - Pregnancy with implant contraceptive [Recovered/Resolved with Sequelae]
  - Nausea [Unknown]
  - Headache [Unknown]
  - Drug ineffective [Unknown]

NARRATIVE: CASE EVENT DATE: 20190616
